FAERS Safety Report 25756067 (Version 1)
Quarter: 2025Q3

REPORT INFORMATION
  Report Type: Spontaneous
  Country: US (occurrence: None)
  Receive Date: 20250902
  Receipt Date: 20250902
  Transmission Date: 20251020
  Serious: Yes (Death)
  Sender: FDA-CTU
  Company Number: None

PATIENT
  Age: 78 Year
  Sex: Male

DRUGS (9)
  1. TACROLIMUS [Suspect]
     Active Substance: TACROLIMUS
     Indication: Renal transplant
     Route: 048
     Dates: start: 20220201
  2. MYCOPHENOLIC ACID [Suspect]
     Active Substance: MYCOPHENOLIC ACID
     Indication: Renal transplant
     Dosage: OTHER QUANTITY : 4 CAPULES OF 250MG;?FREQUENCY : TWICE A DAY;?
     Route: 048
     Dates: start: 20220201
  3. PREDNISONE [Concomitant]
     Active Substance: PREDNISONE
  4. CEPHALEXIN [Concomitant]
     Active Substance: CEPHALEXIN
  5. TAMSULOSIN [Concomitant]
     Active Substance: TAMSULOSIN
  6. ELIQUIS [Concomitant]
     Active Substance: APIXABAN
  7. TERAZOSIN [Concomitant]
     Active Substance: TERAZOSIN HYDROCHLORIDE
  8. DEVICE [Concomitant]
     Active Substance: DEVICE
  9. DEXCOM G6 TRANSMITTER [Concomitant]

REACTIONS (1)
  - Lung disorder [None]

NARRATIVE: CASE EVENT DATE: 20250810
